APPROVED DRUG PRODUCT: XOLEGEL
Active Ingredient: KETOCONAZOLE
Strength: 2%
Dosage Form/Route: GEL;TOPICAL
Application: N021946 | Product #001
Applicant: INA PHARMACEUTICS INC
Approved: Jul 28, 2006 | RLD: Yes | RS: No | Type: DISCN